FAERS Safety Report 8512593-3 (Version None)
Quarter: 2012Q2

REPORT INFORMATION
  Report Type: 
  Country: None (occurrence: None)
  Receive Date: 20120405
  Receipt Date: 20080922
  Transmission Date: 20120825
  Serious: Yes (Disabling, Other)
  Sender: FDA-Public Use
  Company Number: PHEH2008US08310

PATIENT
  Age: 49 Year
  Sex: Female
  Weight: 94.3 kg

DRUGS (3)
  1. RECLAST [Suspect]
     Indication: OSTEOPOROSIS
     Dosage: 5 MG ONCE YEARLY
     Dates: start: 20080107
  2. LUNESTA [Concomitant]
  3. PREVACID [Concomitant]

REACTIONS (6)
  - BLOOD CREATINE PHOSPHOKINASE DECREASED [None]
  - MUSCULAR WEAKNESS [None]
  - PAIN [None]
  - DYSSTASIA [None]
  - ARTHRALGIA [None]
  - GAIT DISTURBANCE [None]
